FAERS Safety Report 7219125-0 (Version None)
Quarter: 2011Q1

REPORT INFORMATION
  Report Type: 
  Country: None (occurrence: None)
  Receive Date: 20110111
  Receipt Date: 20101229
  Transmission Date: 20110831
  Serious: Yes (Hospitalization)
  Sender: FDA-Public Use
  Company Number: US-EISAI INC.-E3810-04303-SPO-US

PATIENT
  Sex: Female
  Weight: 62 kg

DRUGS (6)
  1. ZOLOFT [Concomitant]
     Indication: DEPRESSION
     Route: 048
  2. KLONOPIN [Concomitant]
     Dates: start: 20051101
  3. ACIPHEX [Suspect]
     Route: 048
     Dates: start: 20100709, end: 20101201
  4. RAMIPRIL [Concomitant]
     Route: 048
  5. LIPITOR [Concomitant]
     Indication: BLOOD CHOLESTEROL
     Route: 048
  6. XANAX [Concomitant]
     Indication: DEPRESSION
     Route: 048

REACTIONS (3)
  - DYSPEPSIA [None]
  - HYPERTENSION [None]
  - ABDOMINAL DISCOMFORT [None]
